FAERS Safety Report 8121284-2 (Version None)
Quarter: 2012Q1

REPORT INFORMATION
  Report Type: 
  Country: None (occurrence: None)
  Receive Date: 20120203
  Receipt Date: 20120125
  Transmission Date: 20120608
  Serious: Yes (Life-Threatening, Hospitalization, Other)
  Sender: FDA-Public Use
  Company Number: AUR-APL-2011-06261

PATIENT
  Age: 54 Year
  Sex: Male

DRUGS (9)
  1. RAMIPRIL [Suspect]
     Indication: HYPERTENSION
     Dosage: ORAL
     Route: 048
     Dates: start: 20110101
  2. ATORVASTATIN [Concomitant]
  3. FUROSEMIDE [Concomitant]
  4. CLOPIDOGREL [Concomitant]
  5. BISOPROLOL FUMARATE [Concomitant]
  6. HEPARIN [Concomitant]
  7. METFORMIN HCL [Suspect]
     Indication: DIABETES MELLITUS MANAGEMENT
     Dosage: ORAL
     Route: 048
     Dates: start: 20110101, end: 20111209
  8. ASPIRIN [Concomitant]
  9. GTN (GLYCERYL TRINITRATE) [Concomitant]

REACTIONS (11)
  - RENAL FAILURE ACUTE [None]
  - AMYLASE INCREASED [None]
  - ACTIVATED PARTIAL THROMBOPLASTIN TIME PROLONGED [None]
  - BLOOD BILIRUBIN INCREASED [None]
  - TOXICITY TO VARIOUS AGENTS [None]
  - HYPOTHERMIA [None]
  - SEPSIS [None]
  - LACTIC ACIDOSIS [None]
  - FALL [None]
  - HYPOGLYCAEMIA [None]
  - PLATELET COUNT INCREASED [None]
